FAERS Safety Report 7557999-4 (Version None)
Quarter: 2011Q2

REPORT INFORMATION
  Report Type: 
  Country: None (occurrence: None)
  Receive Date: 20110620
  Receipt Date: 20110607
  Transmission Date: 20111010
  Serious: Yes (Other)
  Sender: FDA-Public Use
  Company Number: CA-JNJFOC-20110604313

PATIENT
  Sex: Female
  Weight: 81.4 kg

DRUGS (6)
  1. CRESTOR [Concomitant]
     Route: 065
  2. ARTHROTEC [Concomitant]
     Route: 065
  3. REMICADE [Suspect]
     Indication: RHEUMATOID ARTHRITIS
     Route: 042
     Dates: start: 20020608
  4. DESYREL [Concomitant]
     Route: 065
  5. FOLIC ACID [Concomitant]
     Route: 065
  6. METHOTREXATE [Concomitant]
     Route: 065

REACTIONS (1)
  - ASTHMA [None]
